FAERS Safety Report 8503640-3 (Version None)
Quarter: 2012Q3

REPORT INFORMATION
  Report Type: 
  Country: None (occurrence: None)
  Receive Date: 20120711
  Receipt Date: 20120709
  Transmission Date: 20120928
  Serious: Yes (Disabling, Other)
  Sender: FDA-Public Use
  Company Number: PHHY2012CL038893

PATIENT
  Age: 97 Year
  Sex: Female

DRUGS (2)
  1. ALPRAZOLAM [Concomitant]
  2. VALSARTAN  AND HYDROCHLOROTHIAZIDE [Suspect]
     Indication: HYPERTENSION
     Dosage: 1 DF (160MG VALSARTAN/ 12.5MG HCTZ) , DAILY
     Route: 048

REACTIONS (3)
  - SENILE DEMENTIA [None]
  - ABASIA [None]
  - BRAIN INJURY [None]
